FAERS Safety Report 25110856 (Version 1)
Quarter: 2025Q1

REPORT INFORMATION
  Report Type: Spontaneous
  Country: LK (occurrence: LK)
  Receive Date: 20250324
  Receipt Date: 20250324
  Transmission Date: 20250409
  Serious: Yes (Other)
  Sender: UNICHEM
  Company Number: LK-UNICHEM LABORATORIES LIMITED-UNI-2025-LK-001495

PATIENT

DRUGS (1)
  1. ALLOPURINOL [Suspect]
     Active Substance: ALLOPURINOL
     Indication: Chronic myeloid leukaemia

REACTIONS (2)
  - Caesarean section [Unknown]
  - Exposure during pregnancy [Unknown]
